FAERS Safety Report 4683399-0 (Version None)
Quarter: 2005Q2

REPORT INFORMATION
  Report Type: 
  Country: None (occurrence: None)
  Receive Date: 20050602
  Receipt Date: 20050404
  Transmission Date: 20051028
  Serious: No
  Sender: FDA-Public Use
  Company Number: 200510674BWH

PATIENT
  Sex: Male

DRUGS (2)
  1. LEVITRA [Suspect]
     Dosage: 20 MG, TOTAL DAILY, ORAL
     Route: 048
     Dates: start: 20050219
  2. LEVITRA [Suspect]
     Dosage: ORAL
     Route: 048
     Dates: start: 20031001, end: 20050101

REACTIONS (1)
  - DRUG INEFFECTIVE [None]
